FAERS Safety Report 16291535 (Version 3)
Quarter: 2019Q2

REPORT INFORMATION
  Report Type: Report from Study
  Country: AU (occurrence: AU)
  Receive Date: 20190509
  Receipt Date: 20190625
  Transmission Date: 20190711
  Serious: Yes (Hospitalization)
  Sender: FDA-Public Use
  Company Number: AU-VERTEX PHARMACEUTICALS-2019-003922

PATIENT
  Age: 33 Year
  Sex: Female
  Weight: 62 kg

DRUGS (34)
  1. NEXIUM [Concomitant]
     Active Substance: ESOMEPRAZOLE MAGNESIUM
     Indication: GASTROOESOPHAGEAL REFLUX DISEASE
     Dosage: 20 MG, BID
     Route: 048
     Dates: start: 1995
  2. FLUTIFORM [Concomitant]
     Active Substance: FLUTICASONE PROPIONATE\FORMOTEROL FUMARATE
     Indication: CYSTIC FIBROSIS LUNG
     Dosage: 3 PUFFS, BID
     Route: 055
     Dates: start: 2016
  3. SODIUM CHLORIDE. [Concomitant]
     Active Substance: SODIUM CHLORIDE
     Indication: SINUS DISORDER
     Dosage: UNK, PRN
     Route: 045
     Dates: start: 2016
  4. PREDNISOLONE. [Concomitant]
     Active Substance: PREDNISOLONE
     Dosage: 6 MG, QD
     Route: 048
     Dates: start: 20190315, end: 20190412
  5. CORTISONE [Concomitant]
     Active Substance: CORTISONE\HYDROCORTISONE
     Indication: HERNIA
     Dosage: 1 INJ, QD
     Route: 058
     Dates: start: 20190403, end: 20190403
  6. LYRICA [Concomitant]
     Active Substance: PREGABALIN
     Indication: ANALGESIC THERAPY
     Dosage: 75 MG, QD
     Route: 048
     Dates: start: 20190403, end: 20190416
  7. VITAMIN K [Concomitant]
     Active Substance: PHYTONADIONE
     Indication: HAEMOPTYSIS
     Dosage: UNK UNK, QD
     Route: 048
     Dates: start: 2016
  8. MONTELUKAST [Concomitant]
     Active Substance: MONTELUKAST SODIUM
     Indication: ASTHMA
  9. MIRENA [Concomitant]
     Active Substance: LEVONORGESTREL
     Indication: CONTRACEPTION
     Dosage: UNK
     Route: 015
     Dates: start: 2016
  10. CALCIUM [Concomitant]
     Active Substance: CALCIUM
     Indication: HYPOVITAMINOSIS
     Dosage: 600 MG, QD
     Route: 048
     Dates: start: 2014
  11. CIPRAMIL                           /00582602/ [Concomitant]
     Active Substance: CITALOPRAM HYDROBROMIDE
     Indication: DEPRESSION
     Dosage: 10 MG
     Route: 048
     Dates: start: 2010
  12. VENTOLIN [Concomitant]
     Active Substance: ALBUTEROL SULFATE
     Indication: CYSTIC FIBROSIS LUNG
     Dosage: 100 MCG, PRN
     Route: 055
     Dates: start: 1990
  13. MONTELUKAST [Concomitant]
     Active Substance: MONTELUKAST SODIUM
     Indication: CYSTIC FIBROSIS LUNG
     Dosage: UNK, BID
     Route: 048
     Dates: start: 2016
  14. ZANTAC [Concomitant]
     Active Substance: RANITIDINE HYDROCHLORIDE
     Indication: GASTROOESOPHAGEAL REFLUX DISEASE
     Dosage: 150 MG, BID
     Route: 048
     Dates: start: 2015
  15. TRANEXAMIC ACID. [Concomitant]
     Active Substance: TRANEXAMIC ACID
     Indication: HAEMOPTYSIS
     Dosage: UNK, PRN
     Route: 055
     Dates: start: 2016
  16. PREDNISOLONE. [Concomitant]
     Active Substance: PREDNISOLONE
     Indication: CYSTIC FIBROSIS LUNG
     Dosage: 7 MG, QD
     Route: 048
     Dates: start: 20190121, end: 20190314
  17. MAGNESIUM [Concomitant]
     Active Substance: MAGNESIUM
     Indication: HYPOVITAMINOSIS
     Dosage: 500 MG, QD
     Route: 048
     Dates: start: 2014
  18. VX-661/VX-770 [Suspect]
     Active Substance: IVACAFTOR\TEZACAFTOR
     Indication: CYSTIC FIBROSIS
     Dosage: 100 MG QD/ 150 MG BID
     Route: 048
     Dates: start: 20190227
  19. SALT [Concomitant]
     Active Substance: SODIUM CHLORIDE
     Indication: HYPOVITAMINOSIS
     Dosage: UNK, QD
     Route: 048
     Dates: start: 20170817
  20. BOTOX [Concomitant]
     Active Substance: ONABOTULINUMTOXINA
     Dosage: ONCE
     Dates: start: 20190313, end: 20190313
  21. CREON [Concomitant]
     Active Substance: PANCRELIPASE AMYLASE\PANCRELIPASE LIPASE\PANCRELIPASE PROTEASE
     Indication: PANCREATIC FAILURE
     Dosage: 25000 UNITS WITH FOOD
     Route: 048
     Dates: start: 2010
  22. CIPRAMIL                           /00582602/ [Concomitant]
     Active Substance: CITALOPRAM HYDROBROMIDE
     Indication: ANXIETY
  23. PULMOZYME [Concomitant]
     Active Substance: DORNASE ALFA
     Indication: CYSTIC FIBROSIS LUNG
     Dosage: UNK, QD
     Route: 055
     Dates: start: 1998
  24. COLOMYCIN                          /00013203/ [Concomitant]
     Active Substance: COLISTIN SULFATE
     Indication: CYSTIC FIBROSIS LUNG
     Dosage: UNK, BID
     Route: 055
     Dates: start: 1998
  25. BACTRIM [Concomitant]
     Active Substance: SULFAMETHOXAZOLE\TRIMETHOPRIM
     Indication: CYSTIC FIBROSIS LUNG
     Dosage: 160/80 MG
     Route: 048
     Dates: start: 201705
  26. MOVICOL [Concomitant]
     Active Substance: POLYETHYLENE GLYCOL 3350\POTASSIUM CHLORIDE\SODIUM BICARBONATE\SODIUM CHLORIDE
     Indication: CONSTIPATION
     Dosage: UNK, QD
     Route: 048
     Dates: start: 2005
  27. PREDNISOLONE. [Concomitant]
     Active Substance: PREDNISOLONE
     Dosage: 5 MG, QD
     Route: 048
     Dates: start: 20190413
  28. VITABDECK [Concomitant]
     Indication: HYPOVITAMINOSIS
     Dosage: 2 DOSAGE FORM, QD
     Route: 048
     Dates: start: 1996
  29. LYRICA [Concomitant]
     Active Substance: PREGABALIN
     Dosage: 150 MG, QD
     Route: 048
     Dates: start: 20190417
  30. PARACETAMOL [Concomitant]
     Active Substance: ACETAMINOPHEN
     Indication: ANALGESIC THERAPY
     Dosage: UNK, PRN
     Route: 048
     Dates: start: 20190403
  31. VX-445 [Suspect]
     Active Substance: INVESTIGATIONAL PRODUCT
     Indication: CYSTIC FIBROSIS
     Dosage: 200 MG, QD
     Route: 048
     Dates: start: 20190227
  32. AZITHROMYCIN ANHYDROUS. [Concomitant]
     Active Substance: AZITHROMYCIN ANHYDROUS
     Indication: CYSTIC FIBROSIS LUNG
     Dosage: UNK, QD
     Route: 048
     Dates: start: 1995
  33. NASONEX [Concomitant]
     Active Substance: MOMETASONE FUROATE
     Indication: SINUS DISORDER
     Dosage: UNK, QD
     Route: 045
     Dates: start: 2010
  34. HYPERTONIC SALINE SOLUTION [Concomitant]
     Active Substance: SODIUM CHLORIDE
     Indication: CYSTIC FIBROSIS LUNG
     Dosage: 5 MILLILITER, BID
     Route: 055
     Dates: start: 201812

REACTIONS (1)
  - Haemoptysis [Recovered/Resolved]

NARRATIVE: CASE EVENT DATE: 20190427
